FAERS Safety Report 7919028-X (Version None)
Quarter: 2011Q4

REPORT INFORMATION
  Report Type: 
  Country: None (occurrence: None)
  Receive Date: 20111116
  Receipt Date: 20111104
  Transmission Date: 20120403
  Serious: Yes (Hospitalization)
  Sender: FDA-Public Use
  Company Number: US-ELI_LILLY_AND_COMPANY-US201108000572

PATIENT
  Age: 63 Year
  Sex: Female

DRUGS (1)
  1. FORTEO [Suspect]
     Indication: OSTEOPOROSIS
     Dosage: UNK, UNKNOWN
     Route: 065

REACTIONS (11)
  - HYPOTENSION [None]
  - FATIGUE [None]
  - GAIT DISTURBANCE [None]
  - INFECTION [None]
  - INTENTIONAL DRUG MISUSE [None]
  - PNEUMONIA [None]
  - DECREASED APPETITE [None]
  - MALAISE [None]
  - MUSCULAR WEAKNESS [None]
  - ARTHRALGIA [None]
  - DIARRHOEA [None]
